FAERS Safety Report 12186600 (Version 1)
Quarter: 2016Q1

REPORT INFORMATION
  Report Type: Spontaneous
  Country: US (occurrence: US)
  Receive Date: 20160317
  Receipt Date: 20160317
  Transmission Date: 20160526
  Serious: Yes (Hospitalization, Other)
  Sender: FDA-Public Use
  Company Number: US-BEH-2016060023

PATIENT
  Sex: Male
  Weight: 86.5 kg

DRUGS (31)
  1. EPIPEN [Concomitant]
     Active Substance: EPINEPHRINE
  2. BUMETANIDE. [Concomitant]
     Active Substance: BUMETANIDE
  3. MINOXIDIL. [Concomitant]
     Active Substance: MINOXIDIL
  4. MIRALAX [Concomitant]
     Active Substance: POLYETHYLENE GLYCOL 3350
  5. PAXIL [Concomitant]
     Active Substance: PAROXETINE HYDROCHLORIDE
  6. CYMBALTA [Concomitant]
     Active Substance: DULOXETINE HYDROCHLORIDE
  7. LISINOPRIL. [Concomitant]
     Active Substance: LISINOPRIL
  8. CRESTOR [Concomitant]
     Active Substance: ROSUVASTATIN CALCIUM
  9. DUONEB [Concomitant]
     Active Substance: ALBUTEROL SULFATE\IPRATROPIUM BROMIDE
  10. HIZENTRA [Suspect]
     Active Substance: HUMAN IMMUNOGLOBULIN G
     Indication: SELECTIVE IGG SUBCLASS DEFICIENCY
     Route: 058
  11. DIPHENHYDRAMINE. [Concomitant]
     Active Substance: DIPHENHYDRAMINE
  12. LYRICA [Concomitant]
     Active Substance: PREGABALIN
  13. MORPHINE [Concomitant]
     Active Substance: MORPHINE
  14. MULTIVITAMIN [Concomitant]
     Active Substance: VITAMINS
  15. FISH OIL [Concomitant]
     Active Substance: FISH OIL
  16. PLAVIX [Concomitant]
     Active Substance: CLOPIDOGREL BISULFATE
  17. LMX [Concomitant]
     Active Substance: LIDOCAINE
  18. ASPIRIN. [Concomitant]
     Active Substance: ASPIRIN
  19. PANTOPRAZOLE [Concomitant]
     Active Substance: PANTOPRAZOLE SODIUM
  20. SYMBICORT [Concomitant]
     Active Substance: BUDESONIDE\FORMOTEROL FUMARATE DIHYDRATE
  21. VITAMIN D [Concomitant]
     Active Substance: CHOLECALCIFEROL
  22. HIZENTRA [Suspect]
     Active Substance: HUMAN IMMUNOGLOBULIN G
     Indication: IMMUNODEFICIENCY COMMON VARIABLE
     Route: 058
  23. ACETAMINOPHEN. [Concomitant]
     Active Substance: ACETAMINOPHEN
  24. LIDOCAINE-PRILOCAINE [Concomitant]
     Active Substance: LIDOCAINE\PRILOCAINE
  25. SPIROLACTONE [Concomitant]
     Active Substance: SPIRONOLACTONE
  26. AZELASTINE [Concomitant]
     Active Substance: AZELASTINE
  27. SINGULAIR [Concomitant]
     Active Substance: MONTELUKAST SODIUM
  28. LASIX [Concomitant]
     Active Substance: FUROSEMIDE
  29. POTASSIUM CL ER [Concomitant]
     Active Substance: POTASSIUM CHLORIDE
  30. TAMSULOSIN [Concomitant]
     Active Substance: TAMSULOSIN
  31. OXYCODONE AND ACETAMINOPHEN [Concomitant]
     Active Substance: ACETAMINOPHEN\OXYCODONE HYDROCHLORIDE

REACTIONS (1)
  - Endovenous ablation [Unknown]
